FAERS Safety Report 9954495 (Version 1)
Quarter: 2014Q1

REPORT INFORMATION
  Report Type: Spontaneous
  Country: AU (occurrence: AU)
  Receive Date: 20140304
  Receipt Date: 20140304
  Transmission Date: 20141002
  Serious: Yes (Hospitalization)
  Sender: FDA-Public Use
  Company Number: AU-MYLANLABS-2014S1004100

PATIENT
  Age: 56 Year
  Sex: Male

DRUGS (1)
  1. CLOZAPINE [Suspect]
     Indication: SCHIZOPHRENIA, PARANOID TYPE
     Dosage: 300MG DAILY
     Route: 065

REACTIONS (4)
  - Hypotension [Recovering/Resolving]
  - Weight decreased [Recovering/Resolving]
  - Vitamin D deficiency [Unknown]
  - Dizziness [Recovered/Resolved]
